FAERS Safety Report 14784256 (Version 2)
Quarter: 2018Q2

REPORT INFORMATION
  Report Type: Spontaneous
  Country: US (occurrence: US)
  Receive Date: 20180420
  Receipt Date: 20180626
  Transmission Date: 20180711
  Serious: Yes (Disabling, Other)
  Sender: FDA-Public Use
  Company Number: US-REGENERON PHARMACEUTICALS, INC.-2018-20894

PATIENT

DRUGS (1)
  1. EYLEA [Suspect]
     Active Substance: AFLIBERCEPT
     Indication: MACULAR DEGENERATION
     Dosage: 2 MG, EVERY 28 DAYS
     Route: 031
     Dates: start: 20180228, end: 20180320

REACTIONS (3)
  - Eye inflammation [Unknown]
  - Frustration tolerance decreased [Unknown]
  - Blindness [Unknown]

NARRATIVE: CASE EVENT DATE: 20180320
